FAERS Safety Report 7611372-9 (Version None)
Quarter: 2011Q3

REPORT INFORMATION
  Report Type: 
  Country: None (occurrence: None)
  Receive Date: 20110715
  Receipt Date: 20110630
  Transmission Date: 20111222
  Serious: Yes (Other)
  Sender: FDA-Public Use
  Company Number: US-BAYER-2011-058368

PATIENT
  Sex: Female

DRUGS (2)
  1. IBUPROFEN (ADVIL) [Concomitant]
     Indication: BACK PAIN
     Dosage: 2 DF, ONCE
  2. ALEVE (CAPLET) [Suspect]
     Indication: BACK PAIN
     Dosage: DAILY DOSE 2 DF
     Route: 048

REACTIONS (4)
  - CHILLS [None]
  - RASH GENERALISED [None]
  - PRURITUS [None]
  - BURNING SENSATION [None]
